FAERS Safety Report 14599650 (Version 2)
Quarter: 2018Q1

REPORT INFORMATION
  Report Type: Report from Study
  Country: None (occurrence: RO)
  Receive Date: 20180305
  Receipt Date: 20180307
  Transmission Date: 20180509
  Serious: Yes (Death, Hospitalization)
  Sender: FDA-Public Use
  Company Number: RO-ABBVIE-17K-135-2185061-00

PATIENT
  Age: 65 Year
  Sex: Male

DRUGS (2)
  1. AZILECT [Concomitant]
     Active Substance: RASAGILINE MESYLATE
     Indication: PRODUCT USED FOR UNKNOWN INDICATION
     Route: 048
  2. DUODOPA [Suspect]
     Active Substance: CARBIDOPA\LEVODOPA
     Indication: PARKINSON^S DISEASE
     Dosage: DM=10.00?DC=4.30?ED=2.00
     Route: 050
     Dates: start: 20170214, end: 20180301

REACTIONS (10)
  - Weight decreased [Not Recovered/Not Resolved]
  - Drug effect incomplete [Not Recovered/Not Resolved]
  - Major depression [Not Recovered/Not Resolved]
  - Dementia [Recovered/Resolved]
  - Nausea [Recovering/Resolving]
  - Starvation [Not Recovered/Not Resolved]
  - Cardio-respiratory arrest [Fatal]
  - Constipation [Recovering/Resolving]
  - Dementia [Not Recovered/Not Resolved]
  - Vomiting [Recovering/Resolving]

NARRATIVE: CASE EVENT DATE: 20171130
